FAERS Safety Report 4914426-0 (Version None)
Quarter: 2006Q1

REPORT INFORMATION
  Report Type: 
  Country: None (occurrence: None)
  Receive Date: 20060216
  Receipt Date: 20050111
  Transmission Date: 20060701
  Serious: Yes (Hospitalization)
  Sender: FDA-Public Use
  Company Number: FR-ABBOTT-05P-056-0286406-03

PATIENT
  Sex: Female
  Weight: 52 kg

DRUGS (10)
  1. HUMIRA [Suspect]
     Indication: RHEUMATOID ARTHRITIS
     Route: 058
     Dates: start: 20001026, end: 20041223
  2. AMPHOTERICIN B [Concomitant]
     Indication: ANTIFUNGAL PROPHYLAXIS
     Route: 048
     Dates: start: 20040101
  3. ACETYLSALICYLATE LYSINE [Concomitant]
     Indication: THROMBOSIS PROPHYLAXIS
     Route: 048
     Dates: start: 20040901
  4. NIMESULIDE [Concomitant]
     Indication: RHEUMATOID ARTHRITIS
     Route: 048
     Dates: start: 20041214
  5. PANTOPRAZOLE [Concomitant]
     Indication: PROPHYLAXIS AGAINST GASTROINTESTINAL ULCER
     Route: 048
     Dates: start: 20041214
  6. BISELECT [Concomitant]
     Indication: HYPERTENSION
     Route: 048
     Dates: start: 20030705
  7. LEVOTHYROXINE SODIUM [Concomitant]
     Indication: HYPOTHYROIDISM
     Route: 048
     Dates: start: 20030705
  8. LEVOTHYROXINE SODIUM [Concomitant]
  9. ACETYLSALICYLATE LYSINE [Concomitant]
     Indication: ANGINA PECTORIS
     Route: 048
  10. AMLODIPINE BESYLATE [Concomitant]
     Indication: HYPERTENSION
     Route: 048

REACTIONS (25)
  - ARRHYTHMIA [None]
  - BRONCHITIS [None]
  - BUNDLE BRANCH BLOCK RIGHT [None]
  - CARDIOMYOPATHY [None]
  - DEAFNESS BILATERAL [None]
  - DEAFNESS NEUROSENSORY [None]
  - ECHOCARDIOGRAM [None]
  - ENCEPHALOPATHY [None]
  - ENDOCARDITIS [None]
  - FUNGAL INFECTION [None]
  - HAEMATURIA [None]
  - HYPERTENSION [None]
  - HYPERTHERMIA [None]
  - HYPONATRAEMIA [None]
  - INAPPROPRIATE ANTIDIURETIC HORMONE SECRETION [None]
  - INTRACRANIAL PRESSURE INCREASED [None]
  - LYMPHOMA [None]
  - MENINGITIS [None]
  - PAIN [None]
  - PYREXIA [None]
  - PYURIA [None]
  - RENAL FAILURE [None]
  - STOMATITIS [None]
  - TROPONIN INCREASED [None]
  - TUBERCULOSIS [None]
